FAERS Safety Report 7471834-4 (Version None)
Quarter: 2011Q2

REPORT INFORMATION
  Report Type: 
  Country: None (occurrence: None)
  Receive Date: 20110511
  Receipt Date: 20100517
  Transmission Date: 20111010
  Serious: No
  Sender: FDA-Public Use
  Company Number: A0862330A

PATIENT
  Age: 57 Year
  Sex: Female

DRUGS (1)
  1. TYKERB [Suspect]
     Dosage: 1250MG PER DAY
     Route: 048
     Dates: start: 20100517

REACTIONS (7)
  - DRUG ADMINISTRATION ERROR [None]
  - SWOLLEN TONGUE [None]
  - SKIN TIGHTNESS [None]
  - TONGUE BITING [None]
  - OEDEMA PERIPHERAL [None]
  - PAIN [None]
  - DIARRHOEA [None]
